FAERS Safety Report 9955690 (Version 2)
Quarter: 2014Q1

REPORT INFORMATION
  Report Type: Spontaneous
  Country: JP (occurrence: JP)
  Receive Date: 20140304
  Receipt Date: 20140304
  Transmission Date: 20141002
  Serious: Yes (Other)
  Sender: FDA-Public Use
  Company Number: PHHY2014JP016543

PATIENT
  Sex: 0

DRUGS (1)
  1. CEFTRIAXONE SODIUM [Suspect]
     Route: 042

REACTIONS (3)
  - Hepatic function abnormal [Not Recovered/Not Resolved]
  - Gamma-glutamyltransferase increased [Not Recovered/Not Resolved]
  - Hyperkalaemia [Unknown]
